FAERS Safety Report 12182427 (Version 1)
Quarter: 2016Q1

REPORT INFORMATION
  Report Type: Spontaneous
  Country: FR (occurrence: FR)
  Receive Date: 20160316
  Receipt Date: 20160316
  Transmission Date: 20160526
  Serious: Yes (Other)
  Sender: FDA-Public Use
  Company Number: FR-ASTRAZENECA-2016SE27725

PATIENT
  Age: 812 Month
  Sex: Male

DRUGS (5)
  1. BYDUREON [Suspect]
     Active Substance: EXENATIDE
     Indication: TYPE 2 DIABETES MELLITUS
     Route: 065
     Dates: start: 20151210, end: 20160208
  2. LERCAN [Concomitant]
     Active Substance: LERCANIDIPINE
  3. TAHOR [Concomitant]
     Active Substance: ATORVASTATIN CALCIUM
  4. PREVISCAN [Concomitant]
     Active Substance: FLUINDIONE
  5. SOTALOL. [Concomitant]
     Active Substance: SOTALOL

REACTIONS (5)
  - Platelet count increased [Unknown]
  - Nausea [Unknown]
  - Off label use [Recovered/Resolved]
  - Lipase increased [Recovering/Resolving]
  - Blood triglycerides increased [Unknown]

NARRATIVE: CASE EVENT DATE: 201601
